FAERS Safety Report 9844956 (Version 1)
Quarter: 2014Q1

REPORT INFORMATION
  Report Type: Spontaneous
  Country: JP (occurrence: None)
  Receive Date: 20140122
  Receipt Date: 20140122
  Transmission Date: 20141002
  Serious: Yes (Life-Threatening, Hospitalization)
  Sender: FDA-Public Use
  Company Number: B0843621A

PATIENT
  Age: 51 Year
  Sex: Male

DRUGS (3)
  1. PAROXETINE HYDROCHLORIDE [Suspect]
     Indication: DEPRESSION
     Dates: start: 2006
  2. PAROXETINE HYDROCHLORIDE [Suspect]
     Indication: DEPRESSION
  3. SERTRALINE HYDROCHLORIDE [Concomitant]

REACTIONS (6)
  - Immune thrombocytopenic purpura [None]
  - Nasopharyngitis [None]
  - Haemorrhage subcutaneous [None]
  - Mouth haemorrhage [None]
  - Pulmonary haemorrhage [None]
  - No therapeutic response [None]
